FAERS Safety Report 13651986 (Version 1)
Quarter: 2017Q2

REPORT INFORMATION
  Report Type: Spontaneous
  Country: US (occurrence: US)
  Receive Date: 20170614
  Receipt Date: 20170614
  Transmission Date: 20170830
  Serious: Yes (Death, Life-Threatening, Hospitalization, Disabling)
  Sender: FDA-Public Use
  Company Number: None

PATIENT
  Age: 83 Year
  Sex: Male
  Weight: 60 kg

DRUGS (7)
  1. CAVERSIL [Concomitant]
  2. LUCRIN [Concomitant]
     Active Substance: LEUPROLIDE ACETATE
  3. VOTRIENT [Concomitant]
     Active Substance: PAZOPANIB HYDROCHLORIDE
  4. ANONDRON [Concomitant]
  5. PAZONIB [Concomitant]
  6. VOTRIENT [Suspect]
     Active Substance: PAZOPANIB HYDROCHLORIDE
     Indication: RENAL CANCER METASTATIC
     Dosage: ?          QUANTITY:1 TABLET(S);?
     Route: 048
     Dates: start: 20170424, end: 20170508
  7. NITODIMITE [Concomitant]

REACTIONS (8)
  - Fatigue [None]
  - Depressed mood [None]
  - Anaemia [None]
  - Lung infection [None]
  - Embolic stroke [None]
  - Asthenia [None]
  - Ischaemic stroke [None]
  - Drug monitoring procedure not performed [None]

NARRATIVE: CASE EVENT DATE: 20170424
